FAERS Safety Report 4389321-9 (Version None)
Quarter: 2004Q2

REPORT INFORMATION
  Report Type: 
  Country: None (occurrence: None)
  Receive Date: 20040628
  Receipt Date: 20040611
  Transmission Date: 20050107
  Serious: Yes (Hospitalization)
  Sender: FDA-Public Use
  Company Number: JP-JNJFOC-20040202203

PATIENT
  Age: 34 Year
  Sex: Female

DRUGS (32)
  1. REMICADE [Suspect]
     Indication: RHEUMATOID ARTHRITIS
     Dosage: 138 MG, INTRAVENOUS; SEE IMAGE
     Route: 042
     Dates: start: 20031205
  2. REMICADE [Suspect]
     Indication: RHEUMATOID ARTHRITIS
     Dosage: 138 MG, INTRAVENOUS; SEE IMAGE
     Route: 042
     Dates: start: 20031219
  3. REMICADE [Suspect]
     Indication: RHEUMATOID ARTHRITIS
     Dosage: 138 MG, INTRAVENOUS; SEE IMAGE
     Route: 042
     Dates: start: 20040116
  4. REMICADE [Suspect]
     Indication: RHEUMATOID ARTHRITIS
     Dosage: 138 MG, INTRAVENOUS; SEE IMAGE
     Route: 042
     Dates: start: 20040312
  5. REMICADE [Suspect]
     Indication: RHEUMATOID ARTHRITIS
     Dosage: 138 MG, INTRAVENOUS; SEE IMAGE
     Route: 042
     Dates: start: 20040423
  6. METHOTREXATE [Concomitant]
  7. PREDNISOLONE [Concomitant]
  8. LIMETHASON (ALL OTHER THERAPEUTIC PRODUCTS) [Concomitant]
  9. DECADRON [Concomitant]
  10. VOLTAREN [Concomitant]
  11. MILTAX (KETOPROFEN) [Concomitant]
  12. FOLIC ACID [Concomitant]
  13. ALFAROL (ALFACALCIDOL) [Concomitant]
  14. ASPIRIN [Concomitant]
  15. FAMOGAST (FAMOTIDINE) [Concomitant]
  16. CYTOTEC [Concomitant]
  17. SELBEX (TEPRENONE) [Concomitant]
  18. JUVELA (TOCOPHEROL) [Concomitant]
  19. THIATON (TIQUIZIUM BROMIDE) [Concomitant]
  20. FERROMIA (FERROUS CITRATE) [Concomitant]
  21. TALIN (TERBUTALINE SULFATE) [Concomitant]
  22. GATIFLO (GATIFLOXACIN) [Concomitant]
  23. PL (OTHER COLD COMBINATION PREPARATIONS) [Concomitant]
  24. SENEGA (SENEGA) [Concomitant]
  25. APRICOT KEMEL WATER (APRICOT KERNEL WATER) [Concomitant]
  26. SIMPLE SYRUP (ALL OTHER THERAPEUTIC PRODUCTS) [Concomitant]
  27. CODEINE SYRUP (CODEINE PHOSPHATE) [Concomitant]
  28. ANPLAG (SARPOGRELATE HYDROCHLORIDE) [Concomitant]
  29. NIPOLAZIN (MEQUITAZINE) [Concomitant]
  30. LIPLE (ALPROSTADIL) [Concomitant]
  31. LIPLE (ALPROSTADIL) [Concomitant]
  32. DOMER (PINAZEPAM) [Concomitant]

REACTIONS (1)
  - RAYNAUD'S PHENOMENON [None]
